FAERS Safety Report 6091460-1 (Version None)
Quarter: 2009Q1

REPORT INFORMATION
  Report Type: 
  Country: None (occurrence: None)
  Receive Date: 20090219
  Receipt Date: 20090219
  Transmission Date: 20090719
  Serious: Yes (Other)
  Sender: FDA-Public Use
  Company Number: None

PATIENT
  Age: 24 Year
  Sex: Female
  Weight: 58.9676 kg

DRUGS (1)
  1. CYMBALTA [Suspect]
     Indication: ANXIETY
     Dosage: CYMBALTA DAILY PO
     Route: 048
     Dates: start: 20060301, end: 20090119

REACTIONS (12)
  - ADVERSE DRUG REACTION [None]
  - CONSTIPATION [None]
  - DRY EYE [None]
  - DRY MOUTH [None]
  - FATIGUE [None]
  - HYPERHIDROSIS [None]
  - LIBIDO DECREASED [None]
  - RASH PRURITIC [None]
  - TINEA INFECTION [None]
  - TREATMENT FAILURE [None]
  - VITAMIN B12 DEFICIENCY [None]
  - XERODERMA [None]
